FAERS Safety Report 8056218-2 (Version None)
Quarter: 2011Q4

REPORT INFORMATION
  Report Type: 
  Country: None (occurrence: None)
  Receive Date: 20111216
  Receipt Date: 20110131
  Transmission Date: 20120403
  Serious: Yes (Other)
  Sender: FDA-Public Use
  Company Number: 259135USA

PATIENT
  Age: 41 Year
  Sex: Female
  Weight: 67.1324 kg

DRUGS (1)
  1. PARAGARD T 380A [Suspect]
     Indication: CONTRACEPTION
     Dosage: I.U.
     Dates: start: 20050323, end: 20101207

REACTIONS (6)
  - MUSCULOSKELETAL PAIN [None]
  - BACK PAIN [None]
  - DEVICE DISLOCATION [None]
  - DEVICE BREAKAGE [None]
  - ABDOMINAL PAIN LOWER [None]
  - ARTHRALGIA [None]
